FAERS Safety Report 5381521-4 (Version None)
Quarter: 2007Q3

REPORT INFORMATION
  Report Type: 
  Country: None (occurrence: None)
  Receive Date: 20070709
  Receipt Date: 20070628
  Transmission Date: 20080115
  Serious: Yes (Other)
  Sender: FDA-Public Use
  Company Number: GB-PFIZER INC-2006101864

PATIENT
  Age: 74 Year
  Sex: Female

DRUGS (8)
  1. PREDNISOLONE [Suspect]
     Indication: POSTOPERATIVE CARE
     Dosage: TEXT:UNKNOWN-FREQ:UNKNOWN
     Route: 065
  2. CHLORAMPHENICOL [Suspect]
     Dosage: TEXT:UNKNOWN-FREQ:UNKNOWN
     Route: 065
  3. BUPIVACAINE [Suspect]
     Indication: ANAESTHESIA
     Route: 065
  4. CEFUROXIME [Suspect]
     Indication: POSTOPERATIVE CARE
     Dosage: TEXT:UNKNOWN-FREQ:UNKNOWN
     Route: 058
  5. HYALURONIDASE [Suspect]
     Indication: ANAESTHESIA
     Route: 065
  6. LIDOCAINE [Suspect]
     Indication: ANAESTHESIA
     Route: 065
  7. POVIDONE IODINE [Concomitant]
     Route: 061
  8. PROXYMETACAINE [Concomitant]
     Route: 065

REACTIONS (2)
  - DRUG HYPERSENSITIVITY [None]
  - PAROPHTHALMIA [None]
